FAERS Safety Report 8175210-0 (Version None)
Quarter: 2012Q1

REPORT INFORMATION
  Report Type: 
  Country: None (occurrence: None)
  Receive Date: 20120229
  Receipt Date: 20120221
  Transmission Date: 20120608
  Serious: Yes (Hospitalization, Other)
  Sender: FDA-Public Use
  Company Number: US-PFIZER INC-HQWYE846425APR07

PATIENT
  Sex: Male
  Weight: 61 kg

DRUGS (3)
  1. TEMSIROLIMUS [Suspect]
     Indication: METASTATIC RENAL CELL CARCINOMA
     Dosage: 15.0 MG, WEEKLY
     Route: 042
     Dates: start: 20070405, end: 20070419
  2. SUNITINIB MALATE [Suspect]
     Indication: METASTATIC RENAL CELL CARCINOMA
     Dosage: 25 MG, ONCE DAILY FOR 4 WEEKS
     Route: 048
     Dates: start: 20070405, end: 20070423
  3. DIPHENHYDRAMINE [Concomitant]
     Indication: PREMEDICATION
     Dosage: 25 MG TO 50 MG 30 MINUTES BEFORE EACH TEMSIROLIMUS INFUSION

REACTIONS (3)
  - THROMBOCYTOPENIA [None]
  - GOUT [None]
  - CELLULITIS [None]
